FAERS Safety Report 10172811 (Version 2)
Quarter: 2015Q4

REPORT INFORMATION
  Report Type: Spontaneous
  Country: US (occurrence: US)
  Receive Date: 20140515
  Receipt Date: 20151009
  Transmission Date: 20160304
  Serious: Yes (Hospitalization, Other)
  Sender: FDA-Public Use
  Company Number: US-GLAXOSMITHKLINE-A1065174A

PATIENT
  Sex: Female

DRUGS (5)
  1. LAMOTRIGINE. [Suspect]
     Active Substance: LAMOTRIGINE
     Indication: EPILEPSY
     Route: 048
     Dates: start: 2003
  2. DEPAKOTE [Interacting]
     Active Substance: DIVALPROEX SODIUM
     Indication: PRODUCT USED FOR UNKNOWN INDICATION
     Route: 065
  3. LAMICTAL [Interacting]
     Active Substance: LAMOTRIGINE
     Dosage: 150 MG AND 25 MG
  4. KEPPRA [Concomitant]
     Active Substance: LEVETIRACETAM
     Indication: EPILEPSY
     Dates: start: 2003
  5. LAMICTAL [Interacting]
     Active Substance: LAMOTRIGINE
     Indication: EPILEPSY
     Dosage: 150 MG 25 MG TWICE DAILY AND 150 MG TWICE DAILY. DURING MENSES, SHE TAKES AN EXTRA 25 MG.
     Route: 048
     Dates: start: 2003

REACTIONS (19)
  - Fall [Unknown]
  - Drug intolerance [Unknown]
  - Seizure [Unknown]
  - Blindness transient [Recovered/Resolved]
  - Gastritis erosive [Unknown]
  - Oesophageal rupture [Unknown]
  - Protein urine present [Recovered/Resolved]
  - Urine ketone body present [Recovered/Resolved]
  - Toxicity to various agents [Unknown]
  - Rash pruritic [Unknown]
  - Rash papular [Unknown]
  - Generalised tonic-clonic seizure [Unknown]
  - Inability to afford medication [Unknown]
  - Drug interaction [Unknown]
  - Haematemesis [Unknown]
  - Head injury [Unknown]
  - Panic reaction [Unknown]
  - Concussion [Unknown]
  - Formication [Unknown]

NARRATIVE: CASE EVENT DATE: 2003
